FAERS Safety Report 13852888 (Version 3)
Quarter: 2017Q3

REPORT INFORMATION
  Report Type: Spontaneous
  Country: IT (occurrence: IT)
  Receive Date: 20170810
  Receipt Date: 20170927
  Transmission Date: 20171127
  Serious: Yes (Other)
  Sender: FDA-Public Use
  Company Number: IT-AMGEN-ITASP2017120992

PATIENT
  Age: 39 Year
  Sex: Female
  Weight: 58 kg

DRUGS (3)
  1. ACCOFIL [Suspect]
     Active Substance: FILGRASTIM
     Indication: NEUTROPENIA
     Dosage: UNK
     Route: 065
     Dates: start: 201708
  2. PEGFILGRASTIM [Suspect]
     Active Substance: PEGFILGRASTIM
     Indication: NEUTROPENIA
     Dosage: 6 MG, CYCLICAL
     Route: 058
     Dates: start: 20170709, end: 2017
  3. PEGFILGRASTIM [Suspect]
     Active Substance: PEGFILGRASTIM
     Dosage: 6 MG, CYCLICAL
     Route: 058
     Dates: start: 2017

REACTIONS (5)
  - Syncope [Unknown]
  - Tracheal stenosis [Unknown]
  - Constricted affect [Unknown]
  - Abdominal pain [Unknown]
  - Erythema [Unknown]

NARRATIVE: CASE EVENT DATE: 20170709
